FAERS Safety Report 23607342 (Version 2)
Quarter: 2024Q1

REPORT INFORMATION
  Report Type: Spontaneous
  Country: US (occurrence: US)
  Receive Date: 20240307
  Receipt Date: 20240322
  Transmission Date: 20240410
  Serious: Yes (Hospitalization, Other)
  Sender: FDA-Public Use
  Company Number: US-TEVA-VS-3164831

PATIENT
  Age: 6 Decade
  Sex: Female

DRUGS (10)
  1. GABAPENTIN [Suspect]
     Active Substance: GABAPENTIN
     Indication: Axillary pain
     Route: 065
  2. OXYCODONE [Suspect]
     Active Substance: OXYCODONE\OXYCODONE HYDROCHLORIDE
     Indication: Axillary pain
     Dosage: EXTENDED-RELEASE
     Route: 065
  3. OXYCODONE [Suspect]
     Active Substance: OXYCODONE\OXYCODONE HYDROCHLORIDE
     Indication: Axillary pain
     Dosage: RECEIVED IMMEDIATE RELEASE
     Route: 065
  4. OXYCODONE [Suspect]
     Active Substance: OXYCODONE\OXYCODONE HYDROCHLORIDE
     Indication: Axillary pain
     Route: 042
  5. FENTANYL [Suspect]
     Active Substance: FENTANYL\FENTANYL CITRATE
     Indication: Axillary pain
     Dosage: RECEIVED TRANSDERMAL PATCHES AT VARIOUS DOSES
     Route: 065
  6. MORPHINE [Suspect]
     Active Substance: MORPHINE
     Indication: Axillary pain
     Dosage: RECEIVED IMMEDIATE RELEASE
     Route: 065
  7. MORPHINE [Suspect]
     Active Substance: MORPHINE
     Indication: Axillary pain
     Dosage: EXTENDED-RELEASE
     Route: 065
  8. METHADONE [Suspect]
     Active Substance: METHADONE HYDROCHLORIDE
     Indication: Axillary pain
     Route: 065
  9. DULOXETINE [Suspect]
     Active Substance: DULOXETINE
     Indication: Axillary pain
     Route: 065
  10. TRAMADOL [Suspect]
     Active Substance: TRAMADOL\TRAMADOL HYDROCHLORIDE
     Indication: Axillary pain
     Route: 065

REACTIONS (3)
  - Electrocardiogram QT prolonged [Unknown]
  - Drug ineffective [Unknown]
  - Neurotoxicity [Recovered/Resolved]
